FAERS Safety Report 11584522 (Version 1)
Quarter: 2015Q4

REPORT INFORMATION
  Report Type: Spontaneous
  Country: DE (occurrence: DE)
  Receive Date: 20151001
  Receipt Date: 20151001
  Transmission Date: 20160304
  Serious: Yes (Other)
  Sender: FDA-Public Use
  Company Number: DE-BAYER-2015-429964

PATIENT
  Sex: Female

DRUGS (1)
  1. MIRENA [Suspect]
     Active Substance: LEVONORGESTREL
     Dosage: DAILY DOSE 20 ?G/D
     Route: 015

REACTIONS (23)
  - Sudden hearing loss [Recovered/Resolved]
  - Respiratory tract infection [Recovered/Resolved]
  - Skin hyperpigmentation [Recovered/Resolved]
  - Acne [Recovered/Resolved]
  - Cystitis [Recovered/Resolved]
  - Pelvic pain [Recovered/Resolved]
  - Back pain [Recovered/Resolved]
  - Abdominal distension [Recovered/Resolved]
  - Vaginal haemorrhage [Recovered/Resolved]
  - Alopecia [Recovered/Resolved]
  - Dry skin [Recovered/Resolved]
  - Muscle tightness [Recovered/Resolved]
  - Food craving [Recovered/Resolved]
  - Hirsutism [Recovered/Resolved]
  - Fatigue [Recovered/Resolved]
  - Emotional disorder [Recovered/Resolved]
  - Depressed mood [Recovered/Resolved]
  - Nausea [Recovered/Resolved]
  - Coital bleeding [Recovered/Resolved]
  - Constipation [Recovered/Resolved]
  - Crying [Recovered/Resolved]
  - Disturbance in attention [Recovered/Resolved]
  - Dizziness [Recovered/Resolved]
